FAERS Safety Report 17219388 (Version 1)
Quarter: 2020Q1

REPORT INFORMATION
  Report Type: Spontaneous
  Country: US (occurrence: US)
  Receive Date: 20191230
  Receipt Date: 20191230
  Transmission Date: 20200409
  Serious: Yes (Death)
  Sender: FDA-Public Use
  Company Number: None

PATIENT
  Age: 41 Year
  Sex: Male

DRUGS (1)
  1. EXJADE [Suspect]
     Active Substance: DEFERASIROX
     Indication: PANCYTOPENIA
     Dosage: ?          OTHER FREQUENCY:FOUR TIMES DAILY;?
     Route: 048
     Dates: start: 20150708, end: 20191230

REACTIONS (1)
  - Death [None]

NARRATIVE: CASE EVENT DATE: 20191230
